FAERS Safety Report 19984628 (Version 1)
Quarter: 2021Q4

REPORT INFORMATION
  Report Type: Report from Study
  Country: CN (occurrence: CN)
  Receive Date: 20211021
  Receipt Date: 20211021
  Transmission Date: 20220304
  Serious: Yes (Hospitalization)
  Sender: FDA-Public Use
  Company Number: CN-FERRINGPH-2021FE06649

PATIENT
  Age: 89 Year
  Sex: Male

DRUGS (2)
  1. DEGARELIX [Suspect]
     Active Substance: DEGARELIX
     Indication: Prostate cancer
     Dosage: 240 MG, ONCE/SINGLE (ST)
     Route: 058
     Dates: start: 202012
  2. DEGARELIX [Suspect]
     Active Substance: DEGARELIX
     Dosage: 80 MG, MONTHLY (Q4W)
     Route: 058
     Dates: start: 202101

REACTIONS (2)
  - Pyrexia [Recovered/Resolved]
  - Vomiting [Recovered/Resolved]

NARRATIVE: CASE EVENT DATE: 20210916
